FAERS Safety Report 6672843-5 (Version None)
Quarter: 2010Q2

REPORT INFORMATION
  Report Type: 
  Country: None (occurrence: None)
  Receive Date: 20100408
  Receipt Date: 20100329
  Transmission Date: 20101027
  Serious: Yes (Disabling, Other)
  Sender: FDA-Public Use
  Company Number: PHHY2010EC19270

PATIENT
  Sex: Female

DRUGS (1)
  1. GLEEVEC [Suspect]
     Indication: CHRONIC MYELOID LEUKAEMIA
     Dosage: 300 MG, UNK
     Dates: start: 20050114, end: 20100329

REACTIONS (7)
  - CONJUNCTIVAL HAEMORRHAGE [None]
  - EYE PAIN [None]
  - HAEMOGLOBIN DECREASED [None]
  - LACRIMATION INCREASED [None]
  - PHOTOPHOBIA [None]
  - PLATELET COUNT DECREASED [None]
  - WHITE BLOOD CELL COUNT DECREASED [None]
